FAERS Safety Report 9900876 (Version 1)
Quarter: 2014Q1

REPORT INFORMATION
  Report Type: Report from Study
  Country: US (occurrence: US)
  Receive Date: 20140217
  Receipt Date: 20140217
  Transmission Date: 20141002
  Serious: No
  Sender: FDA-Public Use
  Company Number: US-ABBVIE-13P-163-1140531-00

PATIENT
  Age: 38 Year
  Sex: Male
  Weight: 70.64 kg

DRUGS (2)
  1. SIMCOR 500/20 [Suspect]
     Indication: BLOOD CHOLESTEROL INCREASED
     Dosage: 500/20 MG AT BEDTIME
  2. UNKNOWN HEARTBURN MEDICATION [Concomitant]
     Indication: DYSPEPSIA

REACTIONS (3)
  - Flushing [Recovered/Resolved]
  - Headache [Not Recovered/Not Resolved]
  - Weight decreased [Not Recovered/Not Resolved]
